FAERS Safety Report 5706560-2 (Version None)
Quarter: 2008Q2

REPORT INFORMATION
  Report Type: 
  Country: None (occurrence: None)
  Receive Date: 20080415
  Receipt Date: 20080403
  Transmission Date: 20081010
  Serious: Yes (Other)
  Sender: FDA-Public Use
  Company Number: CZ-ELI_LILLY_AND_COMPANY-CZ200803004022

PATIENT
  Age: 16 Year
  Sex: Female
  Weight: 64 kg

DRUGS (9)
  1. XIGRIS [Suspect]
     Indication: MENINGOCOCCAL SEPSIS
     Dosage: 0.024 MG/KG, EVERY HOUR
     Route: 042
     Dates: start: 20080314, end: 20080316
  2. CEFOTAXIME [Concomitant]
     Indication: SEPSIS
     Dosage: UNK, UNKNOWN
     Route: 042
  3. HYDROCORTISONE [Concomitant]
     Indication: SEPTIC SHOCK
     Dosage: UNK, UNKNOWN
     Route: 042
  4. NORADRENALINE [Concomitant]
     Indication: SEPTIC SHOCK
     Dosage: UNK, UNKNOWN
     Route: 042
  5. HEPARIN [Concomitant]
     Dosage: UNK, UNKNOWN
     Route: 042
  6. OMEPRAZOLE [Concomitant]
     Dosage: UNK, UNKNOWN
     Route: 065
  7. METOCLOPRAMIDE [Concomitant]
     Dosage: UNK, UNKNOWN
     Route: 065
  8. FUROSEMIDE [Concomitant]
     Dosage: UNK, UNKNOWN
     Route: 065
  9. FRESH FROZEN PLASMA [Concomitant]
     Dosage: UNK, UNKNOWN
     Route: 065

REACTIONS (2)
  - DISSEMINATED INTRAVASCULAR COAGULATION [None]
  - THROMBOCYTOPENIA [None]
